FAERS Safety Report 4723697-5 (Version None)
Quarter: 2005Q3

REPORT INFORMATION
  Report Type: 
  Country: None (occurrence: None)
  Receive Date: 20050718
  Receipt Date: 20050622
  Transmission Date: 20060218
  Serious: Yes (Life-Threatening)
  Sender: FDA-Public Use
  Company Number: 2005BH000367

PATIENT
  Sex: Male

DRUGS (1)
  1. ADVATE (OCTOCOG ALFA) [Suspect]
     Indication: HAEMOPHILIA

REACTIONS (1)
  - ANAPHYLACTIC REACTION [None]
